FAERS Safety Report 5324187-1 (Version None)
Quarter: 2007Q2

REPORT INFORMATION
  Report Type: 
  Country: None (occurrence: None)
  Receive Date: 20070507
  Receipt Date: 20070427
  Transmission Date: 20071010
  Serious: Yes (Other)
  Sender: FDA-Public Use
  Company Number: 2007SP008004

PATIENT
  Sex: Female

DRUGS (1)
  1. CELESTONE CHRONODOSE (BETAMETHASONE SODIUM PHOSPHATE/ ACETATE) [Suspect]
     Indication: DRUG USE FOR UNKNOWN INDICATION
     Dates: start: 20070401, end: 20070401

REACTIONS (4)
  - APHONIA [None]
  - CHEST DISCOMFORT [None]
  - DYSPNOEA [None]
  - OEDEMA [None]
